FAERS Safety Report 12369729 (Version 1)
Quarter: 2016Q2

REPORT INFORMATION
  Report Type: Report from Study
  Country: US (occurrence: US)
  Receive Date: 20160516
  Receipt Date: 20160516
  Transmission Date: 20160815
  Serious: Yes (Other)
  Sender: FDA-Public Use
  Company Number: US-AMGEN-USASL2016061038

PATIENT
  Age: 71 Year
  Sex: Female

DRUGS (2)
  1. METHOTREXATE [Suspect]
     Active Substance: METHOTREXATE
     Indication: PRODUCT USED FOR UNKNOWN INDICATION
     Dosage: UNK
     Route: 065
  2. ENBREL [Suspect]
     Active Substance: ETANERCEPT
     Indication: PSORIATIC ARTHROPATHY
     Dosage: UNK UNK, QWK
     Route: 065

REACTIONS (10)
  - Drug effect delayed [Recovering/Resolving]
  - Gastric ulcer [Unknown]
  - Mitral valve replacement [Unknown]
  - Pancreatic disorder [Unknown]
  - Malaise [Unknown]
  - Pulmonary hypertension [Unknown]
  - Injection site pain [Unknown]
  - Atrial fibrillation [Unknown]
  - Chronic obstructive pulmonary disease [Unknown]
  - Liver disorder [Unknown]

NARRATIVE: CASE EVENT DATE: 201512
